FAERS Safety Report 11693079 (Version 1)
Quarter: 2015Q4

REPORT INFORMATION
  Report Type: Spontaneous
  Country: US (occurrence: None)
  Receive Date: 20151102
  Receipt Date: 20151102
  Transmission Date: 20160304
  Serious: Yes (Disabling)
  Sender: FDA-Public Use
  Company Number: None

PATIENT
  Age: 23 Year
  Sex: Female

DRUGS (4)
  1. VITAMIN D [Concomitant]
     Active Substance: CHOLECALCIFEROL
  2. FLUOXETINE [Suspect]
     Active Substance: FLUOXETINE HYDROCHLORIDE
     Route: 048
  3. FISH OIL [Concomitant]
     Active Substance: FISH OIL
  4. ZOLOFT [Suspect]
     Active Substance: SERTRALINE HYDROCHLORIDE
     Indication: DEPRESSION
     Route: 048

REACTIONS (10)
  - Apathy [None]
  - Glucose tolerance impaired [None]
  - Weight increased [None]
  - Mood altered [None]
  - Drug withdrawal syndrome [None]
  - Crying [None]
  - Activities of daily living impaired [None]
  - Dizziness [None]
  - Loss of employment [None]
  - Fatigue [None]
